FAERS Safety Report 9767490 (Version 3)
Quarter: 2013Q4

REPORT INFORMATION
  Report Type: Spontaneous
  Country: JP (occurrence: JP)
  Receive Date: 20131217
  Receipt Date: 20131227
  Transmission Date: 20140711
  Serious: No
  Sender: FDA-Public Use
  Company Number: JP-SUCAMPO PHARMA AMERICAS, INC-SPI201300843

PATIENT
  Age: 48 Year
  Sex: Female

DRUGS (18)
  1. AMITIZA [Suspect]
     Indication: CONSTIPATION
     Dosage: 24 MCG, BID
     Route: 048
     Dates: start: 20121203
  2. AMITIZA [Suspect]
     Dosage: 24 MCG, QD
     Route: 048
  3. AMITIZA [Suspect]
     Dosage: 24 MG, UNK
     Route: 048
  4. ALLELOCK [Concomitant]
     Indication: RHINITIS
     Dosage: 5 MG, BID
     Route: 048
     Dates: start: 201006
  5. MYONAL [Concomitant]
     Indication: MUSCULOSKELETAL STIFFNESS
     Dosage: 50 MG, TID
     Route: 048
     Dates: start: 201006
  6. SINGULAIR [Concomitant]
     Indication: ASTHMA
     Dosage: 10 MG, QD
     Route: 048
     Dates: start: 201006
  7. NASONEX [Concomitant]
     Indication: RHINITIS
     Dosage: UNK, 2 SPRAY
     Route: 045
     Dates: start: 201006
  8. SYMBICORT [Concomitant]
     Indication: ASTHMA
     Dosage: UNK, 4 SPRAY
     Route: 055
     Dates: start: 201006
  9. PURSENNID [Concomitant]
     Indication: CONSTIPATION
     Dosage: 24 MG, BID
     Route: 048
     Dates: start: 201006
  10. INTAL [Concomitant]
     Indication: ASTHMA
     Dosage: UNK, 2 SPRAY
     Route: 055
     Dates: start: 201006
  11. BROCIN [Concomitant]
     Indication: COUGH
     Dosage: 3 ML, TID
     Route: 048
     Dates: start: 201006
  12. APRIKOT KERNEL WATER [Concomitant]
     Indication: COUGH
     Dosage: 1 ML, TID
     Route: 048
     Dates: start: 201006
  13. UNKNOWN [Concomitant]
     Indication: ANALGESIC THERAPY
     Dosage: 60 MG, TID
     Route: 048
     Dates: start: 201006
  14. UNKNOWN [Concomitant]
     Indication: ASTHMA
     Dosage: 250 MG, TID
     Route: 048
     Dates: start: 201006
  15. UNKNOWN [Concomitant]
     Indication: CONSTIPATION
     Dosage: UNK
     Route: 048
     Dates: start: 201006
  16. UNKNOWN [Concomitant]
     Indication: ASTHMA
     Dosage: 3 G, TID
     Route: 048
     Dates: start: 201006
  17. UNKNOWN [Concomitant]
     Indication: COUGH
     Dosage: 10 ML, TID
     Route: 048
     Dates: start: 201006
  18. UNKNOWN [Concomitant]
     Indication: INSOMNIA
     Dosage: 1.0 MG, TID
     Route: 048
     Dates: start: 201006

REACTIONS (2)
  - Dyspnoea [Recovered/Resolved]
  - Nausea [Recovered/Resolved]
